FAERS Safety Report 14852167 (Version 1)
Quarter: 2018Q2

REPORT INFORMATION
  Report Type: Spontaneous
  Country: US (occurrence: US)
  Receive Date: 20180419
  Receipt Date: 20180419
  Transmission Date: 20180711
  Serious: Yes (Death)
  Sender: FDA-Public Use
  Company Number: None

PATIENT
  Age: 75 Year
  Sex: Female

DRUGS (2)
  1. SPIRONOLACT [Concomitant]
     Active Substance: SPIRONOLACTONE
  2. SILDENAFIL. [Suspect]
     Active Substance: SILDENAFIL
     Route: 048
     Dates: start: 20180220

REACTIONS (1)
  - Death [None]

NARRATIVE: CASE EVENT DATE: 20180327
